FAERS Safety Report 10211542 (Version 1)
Quarter: 2014Q2

REPORT INFORMATION
  Report Type: Spontaneous
  Country: US (occurrence: US)
  Receive Date: 20140602
  Receipt Date: 20140602
  Transmission Date: 20141212
  Serious: No
  Sender: FDA-Public Use
  Company Number: US-009507513-1405USA015718

PATIENT
  Sex: Female

DRUGS (1)
  1. RAGWITEK [Suspect]
     Indication: SEASONAL ALLERGY
     Dosage: 1 DF, UNK
     Route: 060
     Dates: start: 20140522

REACTIONS (2)
  - Oral pruritus [Unknown]
  - Paraesthesia oral [Unknown]
